FAERS Safety Report 5136292-3 (Version None)
Quarter: 2006Q4

REPORT INFORMATION
  Report Type: 
  Country: None (occurrence: None)
  Receive Date: 20061027
  Receipt Date: 20061025
  Transmission Date: 20070319
  Serious: Yes (Other)
  Sender: FDA-Public Use
  Company Number: US-GLAXOSMITHKLINE-A0624928A

PATIENT
  Age: 58 Year
  Sex: Female

DRUGS (3)
  1. AVANDARYL [Suspect]
     Route: 048
     Dates: start: 20060501
  2. ZETIA [Concomitant]
  3. PROTONIX [Concomitant]

REACTIONS (5)
  - HUNGER [None]
  - HYPERGLYCAEMIA [None]
  - HYPOGLYCAEMIA [None]
  - PAIN IN EXTREMITY [None]
  - WEIGHT INCREASED [None]
